FAERS Safety Report 9776981 (Version 3)
Quarter: 2014Q1

REPORT INFORMATION
  Report Type: Report from Study
  Country: FR (occurrence: FR)
  Receive Date: 20131221
  Receipt Date: 20140131
  Transmission Date: 20141002
  Serious: Yes (Hospitalization)
  Sender: FDA-Public Use
  Company Number: FR-ROCHE-1164295

PATIENT
  Age: 60 Year
  Sex: Female

DRUGS (9)
  1. RITUXIMAB [Suspect]
     Indication: RHEUMATOID ARTHRITIS
     Route: 042
     Dates: start: 20090305
  2. ACTONEL [Concomitant]
     Route: 065
  3. PARACETAMOL [Concomitant]
  4. METHOTREXATE [Concomitant]
     Route: 065
  5. CORTANCYL [Concomitant]
     Route: 065
  6. AMPICILLIN [Concomitant]
  7. COAPROVEL [Concomitant]
     Route: 065
  8. TOPALGIC LP [Concomitant]
     Route: 065
  9. ROACTEMRA [Concomitant]

REACTIONS (6)
  - Lumbar vertebral fracture [Recovered/Resolved]
  - Pyelonephritis acute [Recovered/Resolved]
  - Ankle arthroplasty [Recovered/Resolved]
  - Infusion related reaction [Recovered/Resolved]
  - Pyelonephritis [Recovered/Resolved]
  - Escherichia sepsis [Recovered/Resolved]
